FAERS Safety Report 15171601 (Version 2)
Quarter: 2018Q3

REPORT INFORMATION
  Report Type: Spontaneous
  Country: TR (occurrence: TR)
  Receive Date: 20180720
  Receipt Date: 20180813
  Transmission Date: 20181010
  Serious: Yes (Other)
  Sender: FDA-Public Use
  Company Number: PHHY2018TR045954

PATIENT
  Age: 21 Year
  Sex: Male

DRUGS (2)
  1. NEVANAC [Suspect]
     Active Substance: NEPAFENAC
     Indication: EYE PAIN
     Dosage: UNK, QID
     Route: 047
  2. NEVANAC [Suspect]
     Active Substance: NEPAFENAC
     Indication: OCULAR HYPERAEMIA

REACTIONS (5)
  - Erythema [Recovered/Resolved]
  - Pruritus [Recovering/Resolving]
  - Skin plaque [Recovered/Resolved]
  - Urticaria [Recovered/Resolved]
  - Rash [Recovering/Resolving]
